FAERS Safety Report 21917499 (Version 2)
Quarter: 2023Q1

REPORT INFORMATION
  Report Type: Other
  Country: DE (occurrence: DE)
  Receive Date: 20230126
  Receipt Date: 20230221
  Transmission Date: 20230418
  Serious: Yes (Hospitalization, Other)
  Sender: FDA-Public Use
  Company Number: DE-MACLEODS PHARMACEUTICALS US LTD-MAC2023039433

PATIENT

DRUGS (39)
  1. VALSARTAN [Suspect]
     Active Substance: VALSARTAN
     Indication: Hypertension
     Dosage: 160 MG
     Route: 065
     Dates: start: 20140602
  2. VALSARTAN [Suspect]
     Active Substance: VALSARTAN
     Dosage: UNK
     Route: 065
  3. VALSARTAN [Suspect]
     Active Substance: VALSARTAN
     Dosage: 160 MILLIGRAM, QD START DATE 2012
     Route: 065
  4. AMLODIPINE BESYLATE [Suspect]
     Active Substance: AMLODIPINE BESYLATE
     Indication: Product used for unknown indication
     Dosage: 10 MILLIGRAM
     Route: 065
  5. METOPROLOL [Suspect]
     Active Substance: METOPROLOL
     Indication: Product used for unknown indication
     Dosage: 47.5 MILLIGRAM (47.5 MG, (HALF TABLET) (DAILY EVENING))
     Route: 065
  6. METOPROLOL [Suspect]
     Active Substance: METOPROLOL
     Dosage: 47.5 MILLIGRAM, QD (DAILY MORNING)
     Route: 065
  7. VALSARTAN [Suspect]
     Active Substance: VALSARTAN
     Indication: Hypertension
     Dosage: 320 MILLIGRAM, QD (160 MG, BID (ONCE IN THE MORNING AT ABOUT 8 AM AND ONCE IN THE EVENING AT ABOUT 8
     Route: 065
  8. DICLOFENAC [Suspect]
     Active Substance: DICLOFENAC
     Indication: Product used for unknown indication
     Dosage: UNK
     Route: 065
  9. VALSARTAN [Suspect]
     Active Substance: VALSARTAN
     Indication: Hypertension
     Dosage: 160 MILLIGRAM (STOP DATE 2018)
     Route: 065
  10. ATORVASTATIN CALCIUM\EZETIMIBE [Suspect]
     Active Substance: ATORVASTATIN CALCIUM\EZETIMIBE
     Indication: Hyperlipidaemia
     Dosage: 1 DOSAGE FORM, QD (START DATE 2017, STOP DATE 2018)
     Route: 065
  11. DICLOFENAC DIETHYLAMINE [Suspect]
     Active Substance: DICLOFENAC DIETHYLAMINE
     Indication: Oedema peripheral
     Dosage: 120 GRAM (START DATE 2018)
     Route: 065
  12. HYDROCHLOROTHIAZIDE\VALSARTAN [Concomitant]
     Active Substance: HYDROCHLOROTHIAZIDE\VALSARTAN
     Indication: Product used for unknown indication
     Dosage: UNK, QD (160 MG/12.5 MG, QD, DAILY AT MORNING)
     Route: 065
  13. CANDESARTAN [Concomitant]
     Active Substance: CANDESARTAN
     Indication: Product used for unknown indication
     Dosage: 32 MILLIGRAM, QD (ONCE IN THE MORNING (1-0-0)
     Route: 065
  14. Metoprolol succinat 1 A Pharma [Concomitant]
     Indication: Product used for unknown indication
     Dosage: UNK
     Route: 065
  15. PANTOPRAZOLE SODIUM [Concomitant]
     Active Substance: PANTOPRAZOLE SODIUM
     Indication: Product used for unknown indication
     Dosage: 20 MILLIGRAM
     Route: 065
  16. CANDESARTAN CILEXETIL\HYDROCHLOROTHIAZIDE [Concomitant]
     Active Substance: CANDESARTAN CILEXETIL\HYDROCHLOROTHIAZIDE
     Indication: Product used for unknown indication
     Dosage: UNK
     Route: 065
  17. AMLODIPINE BESYLATE [Concomitant]
     Active Substance: AMLODIPINE BESYLATE
     Indication: Product used for unknown indication
     Dosage: 5 MILLIGRAM (STOP DATE 2019)
     Route: 065
  18. TORSEMIDE [Concomitant]
     Active Substance: TORSEMIDE
     Indication: Product used for unknown indication
     Dosage: 5 MILLIGRAM, QD (5 MG DAILY MORNING)
     Route: 065
  19. INDAPAMIDE [Concomitant]
     Active Substance: INDAPAMIDE
     Indication: Product used for unknown indication
     Dosage: 1 DOSAGE FORM, QD (START DATE OCT 2019)
     Route: 065
  20. PROPRANOLOL HYDROCHLORIDE [Concomitant]
     Active Substance: PROPRANOLOL HYDROCHLORIDE
     Indication: Hypertension
     Dosage: UNK
     Route: 065
  21. PROPRANOLOL HYDROCHLORIDE [Concomitant]
     Active Substance: PROPRANOLOL HYDROCHLORIDE
     Dosage: UNK (START DATE NOV 2015)(INCREASED IN THE MORNING)
     Route: 065
  22. Amlodipin Hexal [Concomitant]
     Indication: Product used for unknown indication
     Dosage: 5 MILLIGRAM
  23. LERCANIDIPINE [Concomitant]
     Active Substance: LERCANIDIPINE
     Indication: Product used for unknown indication
     Dosage: 20 MILLIGRAM, QD (10 MG, BID (ONCE IN THE MORNING, ONCE IN THE EVENING (1-0-1))
     Route: 065
  24. PANTOPRAZOLE [Concomitant]
     Active Substance: PANTOPRAZOLE
     Indication: Product used for unknown indication
     Dosage: 80 MILLIGRAM, QD 40 MG, BID (ONCE IN THE MORNING, ONCE IN THE EVENING (1-0-1)
     Route: 065
  25. PANTOPRAZOLE [Concomitant]
     Active Substance: PANTOPRAZOLE
     Dosage: 40 MILLIGRAM, QD ((ONCE IN THE MORNING (1-0-0))
     Route: 065
  26. PANTOPRAZOLE SODIUM [Concomitant]
     Active Substance: PANTOPRAZOLE SODIUM
     Indication: Product used for unknown indication
     Dosage: UNK (ONCE IN THE EVENING)
     Route: 065
  27. CANDESARTAN CILEXETIL [Concomitant]
     Active Substance: CANDESARTAN CILEXETIL
     Indication: Hypertension
     Dosage: UNK (START DATE: 2018)
     Route: 065
  28. RAMIPRIL [Concomitant]
     Active Substance: RAMIPRIL
     Indication: Hypertension
     Dosage: UNK (START DATE 2018, STOP DATE 2018)
     Route: 065
  29. ATORVASTATIN [Concomitant]
     Active Substance: ATORVASTATIN
     Indication: Product used for unknown indication
     Dosage: 12 MILLIGRAM, QD ((ONCE DAILY IN THE EVENING (0-0-1))
     Route: 065
  30. ATORVASTATIN [Concomitant]
     Active Substance: ATORVASTATIN
     Dosage: 20 MILLIGRAM, QD (20 MG, QD (ONCE DAILY IN THE EVENING (0-0-1))
     Route: 065
  31. ATORVASTATIN CALCIUM [Concomitant]
     Active Substance: ATORVASTATIN CALCIUM
     Indication: Product used for unknown indication
     Dosage: 20 MILLIGRAM, QD (20 MG (DAILY MORNING)) START DATE: 2016
     Route: 065
  32. ATORVASTATIN CALCIUM [Concomitant]
     Active Substance: ATORVASTATIN CALCIUM
     Dosage: 40 MILLIGRAM (START DATE SEP 2020)
     Route: 065
  33. BEZAFIBRATE 1A PHARMA GMBH [Concomitant]
     Indication: Product used for unknown indication
     Dosage: 400 MILLIGRAM, QD (START DATE 2018)
     Route: 065
  34. INDAPAMIDE [Concomitant]
     Active Substance: INDAPAMIDE
     Indication: Product used for unknown indication
     Dosage: 2.5 MILLIGRAM, QD (ONCE IN THE MORNING (1-0-0)
     Route: 065
  35. INDAPAMIDE [Concomitant]
     Active Substance: INDAPAMIDE
     Dosage: 1 DOSAGE FORM (START DATE: ON AN UNKNOWN DATE IN 2019), TABLET
     Route: 065
  36. METOPROLOL SUCCINATE [Concomitant]
     Active Substance: METOPROLOL SUCCINATE
     Indication: Product used for unknown indication
     Dosage: 47.5 MILLIGRAM, QD AT MORNING
     Route: 065
  37. AMLODIPINE [Concomitant]
     Active Substance: AMLODIPINE BESYLATE
     Indication: Product used for unknown indication
     Dosage: 5 MILLIGRAM, QD (DAILY EVENING)
     Route: 065
  38. AMLODIPINE [Concomitant]
     Active Substance: AMLODIPINE BESYLATE
     Dosage: 5 MILLIGRAM, QD (DAILY EVENING)
     Route: 065
  39. CANDESARTAN ABZ [Concomitant]
     Indication: Product used for unknown indication
     Dosage: UNK UNK, QD (START DATE 2018) (ONCE IN THE MORNING)
     Route: 065

REACTIONS (68)
  - Gastrointestinal stromal tumour [Recovering/Resolving]
  - Scar [Unknown]
  - Cough [Unknown]
  - Arteriosclerosis coronary artery [Unknown]
  - Renal artery stenosis [Unknown]
  - Fungal oesophagitis [Unknown]
  - Diabetes mellitus [Unknown]
  - Hypertensive crisis [Unknown]
  - Ill-defined disorder [Unknown]
  - Tricuspid valve incompetence [Unknown]
  - Bradycardia [Unknown]
  - Snoring [Unknown]
  - Scoliosis [Unknown]
  - Trigger finger [Unknown]
  - Anxiety [Unknown]
  - Pyrexia [Recovering/Resolving]
  - Hiatus hernia [Unknown]
  - White blood cells urine positive [Unknown]
  - Dysphagia [Unknown]
  - Hyperlipidaemia [Not Recovered/Not Resolved]
  - Ligament rupture [Unknown]
  - Eczema [Unknown]
  - Limb discomfort [Unknown]
  - Obstructive sleep apnoea syndrome [Unknown]
  - Pain [Unknown]
  - Chest pain [Unknown]
  - Drug hypersensitivity [Unknown]
  - Wheezing [Unknown]
  - Pain in extremity [Unknown]
  - Oropharyngeal pain [Unknown]
  - Urine odour abnormal [Unknown]
  - Hypercholesterolaemia [Unknown]
  - Malaise [Unknown]
  - Abdominal distension [Unknown]
  - Torticollis [Unknown]
  - Back pain [Unknown]
  - Arteriosclerosis [Unknown]
  - Throat irritation [Unknown]
  - Urinary tract infection [Unknown]
  - Tenosynovitis [Unknown]
  - Epicondylitis [Unknown]
  - Haemorrhoids [Unknown]
  - Muscle spasticity [Unknown]
  - Pain in extremity [Unknown]
  - Hyperhomocysteinaemia [Unknown]
  - Oedema peripheral [Unknown]
  - Acne [Unknown]
  - Chest discomfort [Unknown]
  - Dyspepsia [Unknown]
  - Influenza [Recovered/Resolved]
  - Asthma [Unknown]
  - Insomnia [Unknown]
  - Cholelithiasis [Unknown]
  - Dysuria [Unknown]
  - Dyspnoea [Unknown]
  - Urinary incontinence [Unknown]
  - High density lipoprotein decreased [Unknown]
  - Nasopharyngitis [Recovering/Resolving]
  - Chronic gastritis [Unknown]
  - Stress [Unknown]
  - Gastrooesophageal reflux disease [Recovering/Resolving]
  - Paraesthesia [Unknown]
  - Diastolic dysfunction [Unknown]
  - Peripheral swelling [Unknown]
  - Rash [Unknown]
  - Arthralgia [Unknown]
  - Headache [Unknown]
  - Dizziness [Unknown]
